FAERS Safety Report 14679863 (Version 1)
Quarter: 2018Q1

REPORT INFORMATION
  Report Type: Spontaneous
  Country: US (occurrence: US)
  Receive Date: 20180325
  Receipt Date: 20180325
  Transmission Date: 20180509
  Serious: Yes (Disabling)
  Sender: FDA-Public Use
  Company Number: None

PATIENT
  Age: 46 Year
  Sex: Female
  Weight: 126 kg

DRUGS (4)
  1. METRONIDAZOLE 500 MG TABLETS [Suspect]
     Active Substance: METRONIDAZOLE
     Indication: BACTERIAL VAGINOSIS
     Dosage: ?          QUANTITY:14 TABLET(S);?
     Route: 048
     Dates: start: 20180310, end: 20180316
  2. C-PAP MACHINE [Concomitant]
     Active Substance: DEVICE
  3. ARM SLING [Concomitant]
  4. IBUOROFEN [Concomitant]

REACTIONS (5)
  - Musculoskeletal pain [None]
  - Fatigue [None]
  - Insomnia [None]
  - Dizziness [None]
  - Tendon rupture [None]

NARRATIVE: CASE EVENT DATE: 20180319
